FAERS Safety Report 13907268 (Version 1)
Quarter: 2017Q3

REPORT INFORMATION
  Report Type: Spontaneous
  Country: US (occurrence: US)
  Receive Date: 20170825
  Receipt Date: 20170825
  Transmission Date: 20171127
  Serious: No
  Sender: FDA-Public Use
  Company Number: US-ROCHE-1490405

PATIENT
  Age: 14 Year
  Sex: Male
  Weight: 51 kg

DRUGS (1)
  1. NUTROPIN AQ [Suspect]
     Active Substance: SOMATROPIN
     Indication: CHRONIC KIDNEY DISEASE
     Route: 058
     Dates: start: 201104, end: 20141111

REACTIONS (5)
  - Panic reaction [Unknown]
  - Nausea [Unknown]
  - Headache [Unknown]
  - Swelling face [Unknown]
  - Back pain [Unknown]

NARRATIVE: CASE EVENT DATE: 20141111
